FAERS Safety Report 8881826 (Version 2)
Quarter: 2013Q2

REPORT INFORMATION
  Report Type: Spontaneous
  Country: HR (occurrence: HR)
  Receive Date: 20121102
  Receipt Date: 20130410
  Transmission Date: 20140414
  Serious: Yes (Hospitalization, Other)
  Sender: FDA-Public Use
  Company Number: HR-JNJFOC-20121012871

PATIENT
  Sex: Male

DRUGS (4)
  1. RISPOLEPT [Suspect]
     Indication: MAJOR DEPRESSION
     Dosage: 1,0,1
     Route: 048
     Dates: start: 200502, end: 200709
  2. PRAZINE [Suspect]
     Indication: PRODUCT USED FOR UNKNOWN INDICATION
     Dosage: 2,2,3
     Route: 065
  3. FLUOXETINE [Suspect]
     Indication: PRODUCT USED FOR UNKNOWN INDICATION
     Dosage: 2,0,0
     Route: 065
  4. FLURAZEPAM [Suspect]
     Indication: PRODUCT USED FOR UNKNOWN INDICATION
     Dosage: 0,0,1
     Route: 065

REACTIONS (1)
  - Mental disorder [Recovered/Resolved]
